FAERS Safety Report 4363839-7 (Version None)
Quarter: 2004Q2

REPORT INFORMATION
  Report Type: 
  Country: None (occurrence: None)
  Receive Date: 20040521
  Receipt Date: 20040422
  Transmission Date: 20050107
  Serious: Yes (Hospitalization)
  Sender: FDA-Public Use
  Company Number: 2004-00369

PATIENT
  Age: 61 Year
  Sex: Male

DRUGS (1)
  1. IMMUCYST (BCG - IT (CONNAUGHT)), AVENTIS PASTEUR LTD., LOT NOT NEP, I [Suspect]
     Indication: BLADDER CANCER
     Dosage: B.IN., BLADDER

REACTIONS (10)
  - BOVINE TUBERCULOSIS [None]
  - BRONCHITIS [None]
  - CHEST X-RAY ABNORMAL [None]
  - DECREASED APPETITE [None]
  - DYSURIA [None]
  - GENERAL PHYSICAL HEALTH DETERIORATION [None]
  - HAEMATURIA [None]
  - LYMPHOPENIA [None]
  - MILIARY PNEUMONIA [None]
  - PULMONARY GRANULOMA [None]
